FAERS Safety Report 5532402-4 (Version None)
Quarter: 2007Q4

REPORT INFORMATION
  Report Type: 
  Country: None (occurrence: None)
  Receive Date: 20071203
  Receipt Date: 20071121
  Transmission Date: 20080405
  Serious: Yes (Other)
  Sender: FDA-Public Use
  Company Number: US-AMGEN-STX245890

PATIENT
  Sex: Female
  Weight: 82.2 kg

DRUGS (15)
  1. ENBREL [Suspect]
     Indication: PSORIATIC ARTHROPATHY
     Route: 058
     Dates: start: 20050119, end: 20070805
  2. ENBREL [Suspect]
     Indication: PSORIASIS
  3. METHOTREXATE [Concomitant]
     Route: 065
  4. LEXAPRO [Concomitant]
     Route: 048
  5. ZANAFLEX [Concomitant]
  6. TRAMADOL HCL [Concomitant]
     Route: 048
  7. TYLENOL [Concomitant]
  8. LIPITOR [Concomitant]
     Route: 048
  9. FOSAMAX [Concomitant]
     Route: 048
  10. PREMARIN [Concomitant]
     Route: 048
  11. CALCIUM WITH VITAMIN D [Concomitant]
     Route: 048
  12. VITAMIN CAP [Concomitant]
     Route: 048
  13. BIOTIN [Concomitant]
  14. FISH OIL [Concomitant]
  15. VOLTAREN [Concomitant]
     Route: 048

REACTIONS (16)
  - ABDOMINAL DISTENSION [None]
  - AUTOANTIBODY POSITIVE [None]
  - BLOOD CALCIUM DECREASED [None]
  - FATIGUE [None]
  - GASTRITIS EROSIVE [None]
  - HYPOALBUMINAEMIA [None]
  - HYPOGAMMAGLOBULINAEMIA [None]
  - LYMPHOID TISSUE HYPERPLASIA [None]
  - NIGHT SWEATS [None]
  - NORMOCHROMIC NORMOCYTIC ANAEMIA [None]
  - ORAL INFECTION [None]
  - PSORIATIC ARTHROPATHY [None]
  - SINUS DISORDER [None]
  - THROMBOCYTHAEMIA [None]
  - TINNITUS [None]
  - VITAMIN D DEFICIENCY [None]
